FAERS Safety Report 5524190-2 (Version None)
Quarter: 2007Q4

REPORT INFORMATION
  Report Type: 
  Country: None (occurrence: None)
  Receive Date: 20071121
  Receipt Date: 20071116
  Transmission Date: 20080405
  Serious: Yes (Other)
  Sender: FDA-Public Use
  Company Number: US-PFIZER INC-2007043808

PATIENT
  Sex: Male

DRUGS (2)
  1. CELEBREX [Suspect]
  2. BEXTRA [Suspect]
     Route: 048

REACTIONS (2)
  - CARDIOVASCULAR DISORDER [None]
  - SILENT MYOCARDIAL INFARCTION [None]
